FAERS Safety Report 12166647 (Version 1)
Quarter: 2016Q1

REPORT INFORMATION
  Report Type: Spontaneous
  Country: US (occurrence: US)
  Receive Date: 20160310
  Receipt Date: 20160310
  Transmission Date: 20160526
  Serious: No
  Sender: FDA-Public Use
  Company Number: US-AMGEN-USASP2016026712

PATIENT
  Age: 77 Year
  Sex: Female

DRUGS (1)
  1. ENBREL [Suspect]
     Active Substance: ETANERCEPT
     Indication: PSORIATIC ARTHROPATHY
     Dosage: 50 MG, QWK
     Route: 065
     Dates: start: 201601

REACTIONS (6)
  - Cough [Unknown]
  - Device failure [Unknown]
  - Malaise [Unknown]
  - Hypersensitivity [Unknown]
  - Nasal congestion [Unknown]
  - Upper respiratory tract infection [Unknown]
